FAERS Safety Report 23996503 (Version 1)
Quarter: 2024Q2

REPORT INFORMATION
  Report Type: Spontaneous
  Country: FR (occurrence: FR)
  Receive Date: 20240620
  Receipt Date: 20240620
  Transmission Date: 20240716
  Serious: Yes (Other)
  Sender: FDA-Public Use
  Company Number: FR-MALLINCKRODT-MNK202403956

PATIENT
  Age: 8 Year
  Sex: Female
  Weight: 32 kg

DRUGS (7)
  1. UVADEX [Suspect]
     Active Substance: METHOXSALEN
     Indication: Acute graft versus host disease in intestine
     Route: 050
     Dates: start: 20240214
  2. UVADEX [Suspect]
     Active Substance: METHOXSALEN
     Indication: Acute graft versus host disease in skin
  3. ANTICOAGULANT CITRATE DEXTROSE SOLUTION (ACD) NOS [Concomitant]
     Active Substance: CITRIC ACID MONOHYDRATE\DEXTROSE\SODIUM CITRATE
     Indication: Anticoagulant therapy
     Dosage: A/C RATIO: 10:1
  4. CORTISONE [Concomitant]
     Active Substance: CORTISONE
     Dosage: UNKNOWN
  5. CYCLOSPORINE [Concomitant]
     Active Substance: CYCLOSPORINE
     Dosage: UNKNOWN
  6. LETERMOVIR [Concomitant]
     Active Substance: LETERMOVIR
     Dosage: UNKNOWN
  7. MYCOPHENOLIC ACID [Concomitant]
     Active Substance: MYCOPHENOLIC ACID
     Dosage: UNKNOWN

REACTIONS (4)
  - Syncope [Recovered/Resolved]
  - Asthenia [Unknown]
  - Hypotension [Recovered/Resolved]
  - Product use in unapproved indication [Unknown]

NARRATIVE: CASE EVENT DATE: 20240214
